FAERS Safety Report 18288783 (Version 1)
Quarter: 2020Q3

REPORT INFORMATION
  Report Type: Spontaneous
  Country: US (occurrence: US)
  Receive Date: 20200921
  Receipt Date: 20200921
  Transmission Date: 20201103
  Serious: No
  Sender: FDA-Public Use
  Company Number: US-PFIZER INC-2018468531

PATIENT
  Age: 71 Year
  Sex: Female
  Weight: 54.43 kg

DRUGS (1)
  1. DILANTIN [Suspect]
     Active Substance: PHENYTOIN
     Indication: SEIZURE
     Dosage: 300 MG, ONCE A DAY (100MG, 3 CAPSULES BY MOUTH DAILY AT 5 AM.)
     Route: 048

REACTIONS (2)
  - Panic reaction [Unknown]
  - Intentional product misuse [Unknown]
